FAERS Safety Report 8766872 (Version 1)
Quarter: 2012Q4

REPORT INFORMATION
  Report Type: 
  Country: US (occurrence: US)
  Receive Date: 20120904
  Receipt Date: 20120904
  Transmission Date: 20130627
  Serious: No
  Sender: FDA-Public Use
  Company Number: US-TEVA-356669USA

PATIENT
  Age: 49 Year
  Sex: Female

DRUGS (1)
  1. NUVIGIL [Suspect]
     Indication: SLEEP DISORDER THERAPY
     Route: 048
     Dates: start: 20120724

REACTIONS (3)
  - Chest discomfort [Not Recovered/Not Resolved]
  - Headache [Not Recovered/Not Resolved]
  - Nausea [Not Recovered/Not Resolved]
